FAERS Safety Report 24576839 (Version 1)
Quarter: 2024Q4

REPORT INFORMATION
  Report Type: Spontaneous
  Country: FR (occurrence: FR)
  Receive Date: 20241104
  Receipt Date: 20241104
  Transmission Date: 20250114
  Serious: Yes (Death)
  Sender: TEVA
  Company Number: None

PATIENT
  Age: 28 Year
  Sex: Female

DRUGS (1)
  1. KETOPROFEN [Suspect]
     Active Substance: KETOPROFEN
     Indication: Tooth infection
     Dosage: UNKNOWN DOSE, 1FP
     Route: 048
     Dates: start: 202409

REACTIONS (2)
  - Septic shock [Fatal]
  - Cellulitis gangrenous [Fatal]

NARRATIVE: CASE EVENT DATE: 20240920
